FAERS Safety Report 16934911 (Version 5)
Quarter: 2020Q3

REPORT INFORMATION
  Report Type: Spontaneous
  Country: JP (occurrence: JP)
  Receive Date: 20191018
  Receipt Date: 20200828
  Transmission Date: 20201102
  Serious: Yes (Death, Other)
  Sender: FDA-Public Use
  Company Number: JP-CELGENEUS-JPN-20191005576

PATIENT
  Age: 65 Year
  Sex: Male
  Weight: 69.5 kg

DRUGS (33)
  1. REVLIMID [Suspect]
     Active Substance: LENALIDOMIDE
     Indication: PLASMA CELL MYELOMA
     Dosage: UNKNOWN
     Route: 048
     Dates: start: 20160411, end: 20160711
  2. LENADEX [Suspect]
     Active Substance: DEXAMETHASONE ACETATE
     Indication: PLASMA CELL MYELOMA
     Dosage: UNKNOWN
     Route: 048
     Dates: start: 20100629
  3. LENADEX [Suspect]
     Active Substance: DEXAMETHASONE ACETATE
     Dosage: UNKNOWN
     Route: 048
     Dates: start: 20160411, end: 20160711
  4. LENADEX [Suspect]
     Active Substance: DEXAMETHASONE ACETATE
     Dosage: UNKNOWN
     Route: 048
     Dates: start: 20160818, end: 20161228
  5. KYPROLIS [Concomitant]
     Active Substance: CARFILZOMIB
     Indication: PLASMA CELL MYELOMA
     Dosage: UNKNOWN
     Route: 065
     Dates: start: 20190802, end: 20190917
  6. DARZALEX [Concomitant]
     Active Substance: DARATUMUMAB
     Indication: PLASMA CELL MYELOMA
     Dosage: UNKNOWN
     Route: 065
     Dates: start: 20180828, end: 20190703
  7. FAMOTIDINE. [Concomitant]
     Active Substance: FAMOTIDINE
     Indication: PROPHYLAXIS
     Dosage: 20 MILLIGRAM
     Route: 041
     Dates: start: 20191025, end: 20191026
  8. DEXART [Concomitant]
     Active Substance: DEXAMETHASONE SODIUM PHOSPHATE
     Dosage: UNKNOWN
     Route: 065
     Dates: start: 20190802, end: 20190917
  9. DEXART [Concomitant]
     Active Substance: DEXAMETHASONE SODIUM PHOSPHATE
     Dosage: 6.6 MILLIGRAM
     Route: 041
     Dates: start: 20191024, end: 20191025
  10. MORPHINE [Concomitant]
     Active Substance: MORPHINE
     Indication: SEDATION
     Dosage: 30 MILLIGRAM
     Route: 041
     Dates: start: 20191023, end: 20191025
  11. REVLIMID [Suspect]
     Active Substance: LENALIDOMIDE
     Dosage: UNKNOWN
     Route: 048
     Dates: start: 20190802, end: 20190917
  12. REVLIMID [Suspect]
     Active Substance: LENALIDOMIDE
     Dosage: 20 MILLIGRAM
     Route: 048
     Dates: start: 20190927, end: 20191007
  13. FUNGUARD [Concomitant]
     Active Substance: MICAFUNGIN SODIUM
     Indication: PROPHYLAXIS
     Dosage: 150 MILLIGRAM
     Route: 041
     Dates: start: 20191010, end: 20191014
  14. ALKERAN [Concomitant]
     Active Substance: MELPHALAN
     Indication: AUTOLOGOUS HAEMATOPOIETIC STEM CELL TRANSPLANT
     Dosage: 200 MILLIGRAM/SQ. METER
     Route: 065
     Dates: start: 20101018, end: 20101019
  15. ALKERAN [Concomitant]
     Active Substance: MELPHALAN
     Dosage: 200 MILLIGRAM/SQ. METER
     Route: 065
     Dates: start: 20170116, end: 20170117
  16. VELCADE [Concomitant]
     Active Substance: BORTEZOMIB
     Indication: PLASMA CELL MYELOMA
     Dosage: UNKNOWN
     Route: 065
     Dates: start: 20100629
  17. DARZALEX [Concomitant]
     Active Substance: DARATUMUMAB
     Dosage: UNKNOWN
     Route: 065
     Dates: start: 20190927, end: 20191007
  18. DEXART [Concomitant]
     Active Substance: DEXAMETHASONE SODIUM PHOSPHATE
     Indication: PLASMA CELL MYELOMA
     Dosage: UNKNOWN
     Route: 065
     Dates: start: 20100527
  19. VELCADE [Concomitant]
     Active Substance: BORTEZOMIB
     Dosage: UNKNOWN
     Route: 065
     Dates: start: 20160411, end: 20160711
  20. VELCADE [Concomitant]
     Active Substance: BORTEZOMIB
     Dosage: UNKNOWN
     Route: 065
     Dates: start: 20160818, end: 20161228
  21. HALOPERIDOL. [Concomitant]
     Active Substance: HALOPERIDOL
     Indication: SEDATION
     Dosage: 5 MILLIGRAM
     Route: 041
     Dates: start: 20191023, end: 20191025
  22. VITAMEDIN [Concomitant]
     Active Substance: CYANOCOBALAMIN\PYRIDOXINE HYDROCHLORIDE\THIAMINE
     Indication: VITAMIN SUPPLEMENTATION
     Dosage: 1 UNKNOWN
     Route: 041
     Dates: start: 20191025, end: 20191025
  23. LIXIANA [Concomitant]
     Active Substance: EDOXABAN TOSYLATE
     Indication: PROPHYLAXIS
     Dosage: 60 MILLIGRAM
     Route: 048
     Dates: start: 20191015, end: 20191023
  24. ONCOVIN [Concomitant]
     Active Substance: VINCRISTINE SULFATE
     Indication: PLASMA CELL MYELOMA
     Dosage: UNKNOWN
     Route: 065
     Dates: start: 20100527
  25. DOXORUBICIN [Concomitant]
     Active Substance: DOXORUBICIN
     Indication: PLASMA CELL MYELOMA
     Dosage: UNKNOWN
     Route: 065
     Dates: start: 20100527
  26. METOCLOPRAMIDE HYDROCHLORIDE. [Concomitant]
     Active Substance: METOCLOPRAMIDE HYDROCHLORIDE
     Indication: PROPHYLAXIS
     Dosage: 20 MILLIGRAM
     Route: 041
     Dates: start: 20191022, end: 20191022
  27. ROZEREM [Concomitant]
     Active Substance: RAMELTEON
     Indication: PROPHYLAXIS
     Dosage: 8 MILLIGRAM
     Route: 048
     Dates: start: 20191021, end: 20191023
  28. VELCADE [Concomitant]
     Active Substance: BORTEZOMIB
     Dosage: UNKNOWN
     Route: 065
     Dates: start: 20180828, end: 20190703
  29. BELSOMRA [Concomitant]
     Active Substance: SUVOREXANT
     Indication: PROPHYLAXIS
     Dosage: 20 MILLIGRAM
     Route: 048
     Dates: start: 20191021, end: 20191023
  30. DEXART [Concomitant]
     Active Substance: DEXAMETHASONE SODIUM PHOSPHATE
     Indication: ACUTE LYMPHOCYTIC LEUKAEMIA
     Dosage: UNKNOWN
     Route: 065
     Dates: start: 20180828, end: 20190703
  31. DEXART [Concomitant]
     Active Substance: DEXAMETHASONE SODIUM PHOSPHATE
     Dosage: UNKNOWN
     Route: 065
     Dates: start: 20190927, end: 20191007
  32. ATARAX?P [Concomitant]
     Active Substance: HYDROXYZINE HYDROCHLORIDE
     Indication: PROPHYLAXIS
     Dosage: 25 MILLIGRAM
     Route: 041
     Dates: start: 20191022, end: 20191022
  33. HUMULIN NOS [Concomitant]
     Active Substance: INSULIN HUMAN
     Indication: DIABETES MELLITUS
     Dosage: 100 IU (INTERNATIONAL UNIT)
     Route: 041
     Dates: start: 20191024, end: 20191025

REACTIONS (5)
  - Pancreatitis acute [Recovered/Resolved]
  - Pulmonary artery thrombosis [Unknown]
  - Epistaxis [Recovering/Resolving]
  - Plasma cell myeloma [Unknown]
  - Acute lymphocytic leukaemia [Fatal]

NARRATIVE: CASE EVENT DATE: 20180605
